FAERS Safety Report 7132287-9 (Version None)
Quarter: 2010Q4

REPORT INFORMATION
  Report Type: 
  Country: None (occurrence: None)
  Receive Date: 20101129
  Receipt Date: 20101129
  Transmission Date: 20110411
  Serious: Yes (Hospitalization, Disabling, Other)
  Sender: FDA-Public Use
  Company Number: None

PATIENT
  Age: 62 Year
  Sex: Female
  Weight: 72.5755 kg

DRUGS (4)
  1. COLESTIPOL HYDROCHLORIDE [Suspect]
     Indication: BLOOD CHOLESTEROL
     Dosage: 5 GRAMS PER PACKET 3 X DAY
     Route: 048
     Dates: start: 20101006, end: 20101028
  2. COLESTIPOL HYDROCHLORIDE [Suspect]
     Indication: BLOOD CHOLESTEROL
     Dosage: 1 GM TAB 1-2 X/DAY = 2 TABS / DAY  1 GM TAB - 2 TABS 2X/DAY = 4 TABS/DAY
     Dates: start: 20100223, end: 20100712
  3. COLESTIPOL HYDROCHLORIDE [Suspect]
     Indication: BLOOD CHOLESTEROL
     Dosage: 1 GM TAB 1-2 X/DAY = 2 TABS / DAY  1 GM TAB - 2 TABS 2X/DAY = 4 TABS/DAY
     Dates: start: 20100713, end: 20101005
  4. FUTURE PHYSICAL THERAPY [Concomitant]

REACTIONS (11)
  - ASTHENIA [None]
  - CONSTIPATION [None]
  - DYSPEPSIA [None]
  - FATIGUE [None]
  - FLATULENCE [None]
  - INCONTINENCE [None]
  - MIGRAINE [None]
  - MUSCLE SPASMS [None]
  - MUSCULAR WEAKNESS [None]
  - NAUSEA [None]
  - WALKING AID USER [None]
